FAERS Safety Report 7879383-6 (Version None)
Quarter: 2011Q4

REPORT INFORMATION
  Report Type: 
  Country: None (occurrence: None)
  Receive Date: 20111101
  Receipt Date: 20111026
  Transmission Date: 20120403
  Serious: Yes (Hospitalization)
  Sender: FDA-Public Use
  Company Number: NL-AMGEN-NLDCT2011055577

PATIENT
  Age: 85 Year
  Sex: Female

DRUGS (8)
  1. SCOPOLAMINE [Concomitant]
     Dosage: 10 MG, PRN
     Route: 054
     Dates: start: 20111018
  2. METOPROLOL TARTRATE [Concomitant]
     Dosage: 50 MG, UNK
     Route: 048
     Dates: start: 20050101
  3. CINACALCET HYDROCHLORIDE [Suspect]
     Indication: HYPERPARATHYROIDISM SECONDARY
     Dosage: UNK UNK, QD
     Dates: start: 20070626
  4. ALFACALCIDOL [Concomitant]
     Dosage: UNK UNK, QD
     Route: 048
     Dates: start: 20101214
  5. RENAGEL [Concomitant]
     Dosage: UNK UNK, TID
     Route: 048
     Dates: start: 20050101
  6. VITAMINE DICEMET [Concomitant]
     Dosage: UNK
     Dates: start: 20051001
  7. PRAVASTATIN [Concomitant]
     Dosage: 20 UNK, UNK
     Route: 048
     Dates: start: 20050101
  8. AMOXICILLIN [Concomitant]
     Dosage: 500 MG, TID
     Route: 048
     Dates: start: 20111026

REACTIONS (1)
  - BLADDER CANCER [None]
